FAERS Safety Report 16170331 (Version 1)
Quarter: 2019Q2

REPORT INFORMATION
  Report Type: Spontaneous
  Country: US (occurrence: US)
  Receive Date: 20190408
  Receipt Date: 20190408
  Transmission Date: 20190711
  Serious: Yes (Hospitalization)
  Sender: FDA-Public Use
  Company Number: US-TEVA-2019-US-1034472

PATIENT
  Sex: Male

DRUGS (2)
  1. HEPARIN [Concomitant]
     Active Substance: HEPARIN SODIUM
     Indication: DEEP VEIN THROMBOSIS
     Route: 042
     Dates: start: 20190323
  2. ENOXAPARIN SODIUM 60/MG/0.6ML INJ [Suspect]
     Active Substance: ENOXAPARIN SODIUM
     Indication: DEEP VEIN THROMBOSIS
     Dosage: FORM STRENGTH : 60/MG/0.6ML INJ
     Route: 065

REACTIONS (7)
  - Tachycardia [Unknown]
  - Atrial fibrillation [Unknown]
  - Heart rate increased [Unknown]
  - Hyperhidrosis [Unknown]
  - Dizziness [Unknown]
  - Syncope [Unknown]
  - Nausea [Unknown]
